FAERS Safety Report 22349884 (Version 1)
Quarter: 2023Q2

REPORT INFORMATION
  Report Type: Spontaneous
  Country: BR (occurrence: BR)
  Receive Date: 20230522
  Receipt Date: 20230522
  Transmission Date: 20230722
  Serious: Yes (Other)
  Sender: FDA-Public Use
  Company Number: BR-002147023-NVSC2023BR114633

PATIENT
  Sex: Female
  Weight: 56 kg

DRUGS (3)
  1. TIMOLOL MALEATE\TRAVOPROST [Suspect]
     Active Substance: TIMOLOL MALEATE\TRAVOPROST
     Indication: Glaucoma
     Dosage: 1 DRP, (IN EACH EYE), QD (14 YEARS AGO)
     Dates: end: 202302
  2. TRAVATAN [Suspect]
     Active Substance: TRAVOPROST
     Indication: Glaucoma
     Dosage: 1 DRP, (IN EACH EYE), QD
     Dates: start: 202302
  3. TIMOLOL MALEATE [Suspect]
     Active Substance: TIMOLOL MALEATE
     Indication: Glaucoma
     Dosage: 1 DRP, (IN EACH EYE) QD
     Dates: start: 202302

REACTIONS (7)
  - Deafness [Recovered/Resolved with Sequelae]
  - Dry eye [Not Recovered/Not Resolved]
  - Ear discomfort [Unknown]
  - Panic disorder [Not Recovered/Not Resolved]
  - Blood cholesterol increased [Not Recovered/Not Resolved]
  - Anxiety [Not Recovered/Not Resolved]
  - Tinnitus [Not Recovered/Not Resolved]

NARRATIVE: CASE EVENT DATE: 20200101
